FAERS Safety Report 11882194 (Version 1)
Quarter: 2015Q4

REPORT INFORMATION
  Report Type: Spontaneous
  Country: CA (occurrence: None)
  Receive Date: 20151230
  Receipt Date: 20151230
  Transmission Date: 20160305
  Serious: No
  Sender: FDA-Public Use
  Company Number: None

PATIENT
  Age: 45 Year
  Sex: Female
  Weight: 75.75 kg

DRUGS (3)
  1. LUPRON [Suspect]
     Active Substance: LEUPROLIDE ACETATE
     Indication: VULVOVAGINAL BURNING SENSATION
     Route: 028
     Dates: start: 20151006, end: 20151208
  2. VITAMIN C [Concomitant]
     Active Substance: ASCORBIC ACID
  3. CENTRUM VOMEN^S DAILY VITAMIN [Concomitant]

REACTIONS (12)
  - Influenza like illness [None]
  - Pharyngeal oedema [None]
  - Chills [None]
  - Headache [None]
  - Abdominal discomfort [None]
  - Decreased appetite [None]
  - Musculoskeletal stiffness [None]
  - Head discomfort [None]
  - Nasopharyngitis [None]
  - Pain [None]
  - Neck pain [None]
  - Dysphagia [None]

NARRATIVE: CASE EVENT DATE: 20151224
